FAERS Safety Report 15806353 (Version 2)
Quarter: 2019Q2

REPORT INFORMATION
  Report Type: Spontaneous
  Country: US (occurrence: US)
  Receive Date: 20190110
  Receipt Date: 20190524
  Transmission Date: 20190711
  Serious: No
  Sender: FDA-Public Use
  Company Number: US-PFIZER INC-2019009575

PATIENT
  Age: 74 Year
  Sex: Female
  Weight: 90 kg

DRUGS (1)
  1. LYRICA [Suspect]
     Active Substance: PREGABALIN
     Indication: FIBROMYALGIA
     Dosage: 100 MG, 1X/DAY [2 CAPSULES TAKEN BY MOUTH NIGHTLY AT BEDTIME]
     Route: 048
     Dates: start: 2018

REACTIONS (4)
  - Weight increased [Unknown]
  - Off label use [Unknown]
  - Drug ineffective [Unknown]
  - Product use issue [Unknown]

NARRATIVE: CASE EVENT DATE: 2018
